FAERS Safety Report 4942342-7 (Version None)
Quarter: 2006Q1

REPORT INFORMATION
  Report Type: 
  Country: None (occurrence: None)
  Receive Date: 20060313
  Receipt Date: 20060103
  Transmission Date: 20060701
  Serious: No
  Sender: FDA-Public Use
  Company Number: US-GLAXOSMITHKLINE-A0587410A

PATIENT
  Age: 26 Year
  Sex: Female

DRUGS (1)
  1. NICORETTE (MINT) [Suspect]
     Dates: start: 20060102, end: 20060102

REACTIONS (2)
  - ABDOMINAL PAIN UPPER [None]
  - PHARYNGOLARYNGEAL PAIN [None]
